FAERS Safety Report 20658279 (Version 1)
Quarter: 2022Q1

REPORT INFORMATION
  Report Type: Spontaneous
  Country: JP (occurrence: JP)
  Receive Date: 20220331
  Receipt Date: 20220331
  Transmission Date: 20220423
  Serious: Yes (Other)
  Sender: FDA-Public Use
  Company Number: JP-ORGANON-O2203JPN000623J

PATIENT
  Age: 67 Year
  Sex: Male

DRUGS (1)
  1. SINGULAIR [Suspect]
     Active Substance: MONTELUKAST SODIUM
     Dosage: UNK
     Route: 048
     Dates: start: 201911, end: 201911

REACTIONS (1)
  - Oculomucocutaneous syndrome [Unknown]

NARRATIVE: CASE EVENT DATE: 20191101
